FAERS Safety Report 5541687-X (Version None)
Quarter: 2007Q4

REPORT INFORMATION
  Report Type: 
  Country: None (occurrence: None)
  Receive Date: 20071129
  Receipt Date: 20070813
  Transmission Date: 20080405
  Serious: Yes (Hospitalization, Other)
  Sender: FDA-Public Use
  Company Number: US200705006961

PATIENT
  Age: 33 Year
  Sex: Female
  Weight: 70.7 kg

DRUGS (9)
  1. ZYPREXA [Suspect]
     Dosage: 5 MG, EACH EVENING : 10 MG, EACH EVENING
     Dates: start: 19980716, end: 19990401
  2. ZYPREXA [Suspect]
     Dosage: 5 MG, EACH EVENING : 10 MG, EACH EVENING
     Dates: start: 20000530, end: 20011116
  3. ZYPREXA [Suspect]
     Dosage: 5 MG, EACH EVENING : 10 MG, EACH EVENING
     Dates: start: 20021210, end: 20040910
  4. CLOZAPINE [Concomitant]
  5. DEPAKOTE [Concomitant]
  6. LITHIUM CARBONATE [Concomitant]
  7. REMERON [Concomitant]
  8. ABILIFY [Concomitant]
  9. SEROQUEL [Concomitant]

REACTIONS (5)
  - BLOOD CHOLESTEROL INCREASED [None]
  - BLOOD TRIGLYCERIDES INCREASED [None]
  - DIABETES MELLITUS [None]
  - DIABETIC KETOACIDOSIS [None]
  - HYPERGLYCAEMIA [None]
